FAERS Safety Report 14412791 (Version 1)
Quarter: 2018Q1

REPORT INFORMATION
  Report Type: Spontaneous
  Country: SE (occurrence: SE)
  Receive Date: 20180119
  Receipt Date: 20180119
  Transmission Date: 20180509
  Serious: Yes (Disabling)
  Sender: FDA-Public Use
  Company Number: SE-TEVA-2018-SE-847231

PATIENT
  Sex: Male

DRUGS (1)
  1. ISOTRETINOIN. [Suspect]
     Active Substance: ISOTRETINOIN
     Route: 048

REACTIONS (1)
  - Type 1 diabetes mellitus [Not Recovered/Not Resolved]
